FAERS Safety Report 11361812 (Version 1)
Quarter: 2015Q3

REPORT INFORMATION
  Report Type: Report from Study
  Country: NZ (occurrence: NZ)
  Receive Date: 20150810
  Receipt Date: 20150810
  Transmission Date: 20151125
  Serious: Yes (Disabling, Other)
  Sender: FDA-Public Use
  Company Number: PHHY2015NZ079489

PATIENT
  Sex: Male

DRUGS (1)
  1. CLOZARIL [Suspect]
     Active Substance: CLOZAPINE
     Indication: SCHIZOPHRENIA
     Dosage: 475 MG, QD
     Route: 048
     Dates: start: 20120719, end: 2015

REACTIONS (7)
  - Blunted affect [Recovered/Resolved]
  - Electrocardiogram QT prolonged [Unknown]
  - Confusional state [Unknown]
  - Salivary hypersecretion [Recovered/Resolved]
  - Cognitive disorder [Recovered/Resolved]
  - Incontinence [Recovered/Resolved]
  - Drug ineffective [Unknown]
